FAERS Safety Report 8493026 (Version 2)
Quarter: 2012Q4

REPORT INFORMATION
  Report Type: 
  Country: JP (occurrence: JP)
  Receive Date: 20120404
  Receipt Date: 20120904
  Transmission Date: 20130627
  Serious: Yes (Hospitalization, Other)
  Sender: FDA-Public Use
  Company Number: PHHY2012JP028063

PATIENT
  Age: 73 None
  Sex: Female

DRUGS (8)
  1. PARLODEL [Suspect]
     Indication: ACROMEGALY
     Dosage: 2 DF, daily (5 mg)
     Route: 048
     Dates: start: 20000908, end: 20120520
  2. PARLODEL [Suspect]
     Dosage: 2.5 mg, daily
     Route: 048
     Dates: start: 20120521
  3. CLARITHROMYCIN [Suspect]
     Indication: CHRONIC SINUSITIS
     Dosage: 200 mg, BID
     Route: 048
     Dates: end: 20120330
  4. TAKEPRON [Suspect]
     Indication: GASTROOESOPHAGEAL REFLUX DISEASE
     Dosage: 30 mg, daily
     Route: 048
     Dates: end: 20120330
  5. BLOPRESS [Suspect]
     Indication: HYPERTENSION
     Dosage: 8 mg, daily
     Route: 048
  6. REBAMIPIDE [Concomitant]
     Indication: GASTRIC ADENOMA
     Dosage: 2 DF, UNK
     Route: 048
     Dates: end: 20120330
  7. ERYTHROMYCIN [Concomitant]
     Route: 048
  8. AMLODIPINE [Concomitant]
     Indication: HYPERTENSION
     Route: 048
     Dates: end: 20120322

REACTIONS (4)
  - Anaemia [Not Recovered/Not Resolved]
  - Haemoglobin decreased [Not Recovered/Not Resolved]
  - Iron deficiency [Unknown]
  - Dyspnoea [Unknown]
